FAERS Safety Report 9480132 (Version 2)
Quarter: 2013Q3

REPORT INFORMATION
  Report Type: Spontaneous
  Country: TR (occurrence: TR)
  Receive Date: 20130828
  Receipt Date: 20130828
  Transmission Date: 20140515
  Serious: Yes (Other)
  Sender: FDA-Public Use
  Company Number: TR-RANBAXY-2006US-02718

PATIENT
  Age: 27 Year
  Sex: Male

DRUGS (1)
  1. ISOTRETINOIN [Suspect]
     Indication: ACNE CYSTIC
     Dosage: 40 MG/ DAY
     Route: 065

REACTIONS (2)
  - Dermatitis papillaris capillitii [Recovering/Resolving]
  - Hypertrophic scar [Recovering/Resolving]
